FAERS Safety Report 8116846-2 (Version None)
Quarter: 2012Q1

REPORT INFORMATION
  Report Type: 
  Country: None (occurrence: None)
  Receive Date: 20120206
  Receipt Date: 20120202
  Transmission Date: 20120608
  Serious: Yes (Death)
  Sender: FDA-Public Use
  Company Number: PHHY2012NL008731

PATIENT
  Sex: Male

DRUGS (3)
  1. ZOMETA [Suspect]
     Dosage: 4 MG/100 ML ONCE PER 42 DAYS
     Dates: start: 20111122
  2. ZOMETA [Suspect]
     Indication: PROSTATE CANCER METASTATIC
     Dosage: 4 MG/100 ML ONCE PER 42 DAYS
     Dates: start: 20100928
  3. ZOMETA [Suspect]
     Dosage: 4 MG/100 ML ONCE PER 42 DAYS
     Dates: start: 20120106

REACTIONS (1)
  - DEATH [None]
